FAERS Safety Report 25970539 (Version 1)
Quarter: 2025Q4

REPORT INFORMATION
  Report Type: Spontaneous
  Country: EU (occurrence: None)
  Receive Date: 20251028
  Receipt Date: 20251028
  Transmission Date: 20260118
  Serious: Yes (Other)
  Sender: UCB
  Company Number: EU-UCBSA-2025066404

PATIENT
  Age: 14 Year
  Weight: 40 kg

DRUGS (2)
  1. FINTEPLA [Suspect]
     Active Substance: FENFLURAMINE
     Indication: Severe myoclonic epilepsy of infancy
     Dosage: 3.6 MILLILITER
  2. FINTEPLA [Suspect]
     Active Substance: FENFLURAMINE
     Dosage: 7.2 MILLILITER (0.4 MILLIGRAM/KILOGRAM/DAY)

REACTIONS (3)
  - Aortic valve incompetence [Unknown]
  - Seizure [Unknown]
  - Bicuspid aortic valve [Unknown]
